FAERS Safety Report 4507595-8 (Version None)
Quarter: 2004Q4

REPORT INFORMATION
  Report Type: 
  Country: None (occurrence: None)
  Receive Date: 20040928
  Receipt Date: 20040608
  Transmission Date: 20050328
  Serious: No
  Sender: FDA-Public Use
  Company Number: 03P-163-0239711-00

PATIENT
  Age: 37 Year
  Sex: Female
  Weight: 46.2669 kg

DRUGS (5)
  1. HUMIRA [Suspect]
     Indication: RHEUMATOID ARTHRITIS
     Dosage: 40 MG, 1 IN 2 WK, SUBCUTANEOUS : 40 MG, 1 IN 1 WK, SUBCUTANEOUS
     Route: 058
     Dates: start: 20030715
  2. HUMIRA [Suspect]
     Indication: RHEUMATOID ARTHRITIS
     Dosage: 40 MG, 1 IN 2 WK, SUBCUTANEOUS : 40 MG, 1 IN 1 WK, SUBCUTANEOUS
     Route: 058
     Dates: start: 20030801
  3. PREDNISONE [Concomitant]
  4. LORAZEPAM [Concomitant]
  5. ALENDRONATE SODIUM [Concomitant]

REACTIONS (2)
  - BREAST MASS [None]
  - CERVIX CARCINOMA [None]
